FAERS Safety Report 3828300 (Version 2)
Quarter: 2013Q1

REPORT INFORMATION
  Report Type: Spontaneous
  Country: GB (occurrence: GB)
  Receive Date: 20020806
  Receipt Date: 20130225
  Transmission Date: 20140127
  Serious: Yes (Other)
  Sender: FDA-Public Use
  Company Number: PHFR2002GB02005

PATIENT
  Sex: Male

DRUGS (5)
  1. CLOZARIL [Suspect]
     Indication: SCHIZOPHRENIA
     Dosage: 300 MG, QD
     Dates: start: 20000530
  2. CLOZARIL [Suspect]
     Dosage: 325 MG, QD
     Route: 048
  3. CLOZARIL [Suspect]
     Dosage: UNK
     Route: 048
     Dates: start: 20010701
  4. VALPROATE SODIUM [Concomitant]
     Dosage: 500 MG, BID
  5. AMISULPRIDE [Concomitant]
     Dosage: 100 MG, QD
     Route: 048

REACTIONS (5)
  - Computerised tomogram head [Unknown]
  - Cognitive disorder [Unknown]
  - Amnesia [Unknown]
  - Dysarthria [Unknown]
  - Somnolence [Unknown]
